FAERS Safety Report 8460502 (Version 2)
Quarter: 2013Q2

REPORT INFORMATION
  Report Type: Spontaneous
  Country: US (occurrence: None)
  Receive Date: 20120227
  Receipt Date: 20120525
  Transmission Date: 20140414
  Serious: No
  Sender: FDA-Public Use
  Company Number: 343266

PATIENT
  Age: 61 Year
  Sex: Female

DRUGS (1)
  1. VICTOZA [Suspect]
     Indication: TYPE 2 DIABETES MELLITUS
     Dosage: 1.6 MG, QD, SUBCUTANEOUS
     Route: 058
     Dates: start: 201111

REACTIONS (3)
  - SINUSITIS [None]
  - EAR INFECTION [None]
  - BRONCHITIS [None]
